FAERS Safety Report 24396845 (Version 1)
Quarter: 2024Q4

REPORT INFORMATION
  Report Type: Spontaneous
  Country: US (occurrence: None)
  Receive Date: 20241004
  Receipt Date: 20241004
  Transmission Date: 20250115
  Serious: Yes (Other)
  Sender: Public
  Company Number: None

PATIENT
  Age: 80 Year
  Sex: Female

DRUGS (11)
  1. DUPIXENT [Suspect]
     Active Substance: DUPILUMAB
     Indication: Asthma
     Route: 058
     Dates: start: 20240430, end: 20240524
  2. Duoneb inhalation solution [Concomitant]
  3. Losartan/HCTZ 100-12.5MG [Concomitant]
  4. Montelukast 1 0 mg [Concomitant]
  5. MYRBETRIQ [Concomitant]
     Active Substance: MIRABEGRON
  6. OMEGA-3 FATTY ACIDS [Concomitant]
     Active Substance: OMEGA-3 FATTY ACIDS
  7. ROSUVASTATIN [Concomitant]
     Active Substance: ROSUVASTATIN
  8. ALBUTEROL [Concomitant]
     Active Substance: ALBUTEROL
  9. BREZTRI [Concomitant]
     Active Substance: BUDESONIDE\FORMOTEROL\GLYCOPYRROLATE
  10. Budesonide 0.5 mg1 2 ml [Concomitant]
  11. LASIX [Concomitant]
     Active Substance: FUROSEMIDE

REACTIONS (3)
  - Hallucination [None]
  - Insomnia [None]
  - Adverse drug reaction [None]

NARRATIVE: CASE EVENT DATE: 20240601
